FAERS Safety Report 4953837-4 (Version None)
Quarter: 2006Q1

REPORT INFORMATION
  Report Type: 
  Country: None (occurrence: None)
  Receive Date: 20060324
  Receipt Date: 20060324
  Transmission Date: 20060701
  Serious: Yes (Hospitalization)
  Sender: FDA-Public Use
  Company Number: None

PATIENT
  Age: 85 Year
  Sex: Male

DRUGS (13)
  1. FOSINOPRIL [Suspect]
     Indication: CARDIAC FAILURE CONGESTIVE
     Dosage: 60MG  QD
     Dates: start: 20050604, end: 20051101
  2. FOSINOPRIL [Suspect]
     Indication: HYPERTENSION
     Dosage: 60MG  QD
     Dates: start: 20050604, end: 20051101
  3. ISOSORBIDE [Concomitant]
  4. DINITRATE [Concomitant]
  5. OMEPRAZOLE [Concomitant]
  6. SEROQUEL [Concomitant]
  7. DARVOCET [Concomitant]
  8. FLUNISOLIDE [Concomitant]
  9. CYANOCOBALAMIN [Concomitant]
  10. ASPIRIN [Concomitant]
  11. LIPITOR [Concomitant]
  12. CALCIUM CARBONATE [Concomitant]
  13. FELODIPINE [Concomitant]

REACTIONS (3)
  - DYSPNOEA [None]
  - PHARMACEUTICAL PRODUCT COMPLAINT [None]
  - SWELLING FACE [None]
